FAERS Safety Report 7672790-6 (Version None)
Quarter: 2011Q3

REPORT INFORMATION
  Report Type: 
  Country: None (occurrence: None)
  Receive Date: 20110809
  Receipt Date: 20110808
  Transmission Date: 20111222
  Serious: Yes (Other)
  Sender: FDA-Public Use
  Company Number: US-AMGEN-KDC426369

PATIENT
  Age: 77 Year
  Sex: Female

DRUGS (12)
  1. MULTI-VITAMINS [Concomitant]
  2. AMLODIPINE BESYLATE [Concomitant]
  3. COMBIVENT [Concomitant]
  4. BUDESONIDE/FORMOTEROL FUMARATE [Concomitant]
  5. ERGOCALCIFEROL [Concomitant]
  6. FLUTICASONE PROPIONATE [Concomitant]
  7. PSYLLIUM HYDROPHILIC MUCILLOID [Concomitant]
  8. PINDOLOL [Concomitant]
  9. HYDROXYZINE HCL [Concomitant]
  10. DENOSUMAB [Suspect]
     Indication: OSTEOPOROSIS POSTMENOPAUSAL
     Dosage: 60 MG, Q6MO
     Route: 058
     Dates: start: 20080122
  11. CALCIUM CARBONATE [Concomitant]
  12. LEVOTHYROXINE SODIUM [Concomitant]

REACTIONS (1)
  - MYCOBACTERIUM AVIUM COMPLEX INFECTION [None]
